FAERS Safety Report 19960466 (Version 5)
Quarter: 2022Q3

REPORT INFORMATION
  Report Type: Spontaneous
  Country: JP (occurrence: JP)
  Receive Date: 20211015
  Receipt Date: 20220817
  Transmission Date: 20221027
  Serious: Yes (Hospitalization)
  Sender: FDA-Public Use
  Company Number: JP-ELI_LILLY_AND_COMPANY-JP202101005250

PATIENT
  Age: 7 Year
  Sex: Female
  Weight: 15.9 kg

DRUGS (37)
  1. ADCIRCA [Suspect]
     Active Substance: TADALAFIL
     Indication: Pulmonary arterial hypertension
     Dosage: 15 MG, DAILY
     Route: 065
     Dates: start: 20170125, end: 20180913
  2. ADCIRCA [Suspect]
     Active Substance: TADALAFIL
     Dosage: 16-17 MG PER DAY
     Route: 065
     Dates: start: 20180914
  3. UPTRAVI [Suspect]
     Active Substance: SELEXIPAG
     Indication: Pulmonary arterial hypertension
     Dosage: 0.06 MG, BID
     Route: 048
     Dates: start: 20180116, end: 20180220
  4. UPTRAVI [Suspect]
     Active Substance: SELEXIPAG
     Dosage: 0.24 MG, DAILY
     Route: 048
     Dates: start: 20180221, end: 20180320
  5. UPTRAVI [Suspect]
     Active Substance: SELEXIPAG
     Dosage: 0.36 MG, DAILY
     Route: 048
     Dates: start: 20180321, end: 20180417
  6. UPTRAVI [Suspect]
     Active Substance: SELEXIPAG
     Dosage: 0.48 MG, DAILY
     Route: 048
     Dates: start: 20180418, end: 20180515
  7. UPTRAVI [Suspect]
     Active Substance: SELEXIPAG
     Dosage: 0.3 MG, BID
     Route: 048
     Dates: start: 20180516, end: 20180612
  8. UPTRAVI [Suspect]
     Active Substance: SELEXIPAG
     Dosage: 0.36 MG, BID
     Route: 048
     Dates: start: 20180613, end: 20180710
  9. UPTRAVI [Suspect]
     Active Substance: SELEXIPAG
     Dosage: 0.42 MG, BID
     Route: 048
     Dates: start: 20180711, end: 20180814
  10. UPTRAVI [Suspect]
     Active Substance: SELEXIPAG
     Dosage: 0.48 MG, BID
     Route: 048
     Dates: start: 20180815, end: 20180913
  11. UPTRAVI [Suspect]
     Active Substance: SELEXIPAG
     Dosage: 0.512 MG, BID
     Route: 048
     Dates: start: 20180914, end: 20181016
  12. UPTRAVI [Suspect]
     Active Substance: SELEXIPAG
     Dosage: 0.544 MG, BID
     Route: 048
     Dates: start: 20181017
  13. OPSUMIT [Concomitant]
     Active Substance: MACITENTAN
     Indication: Pulmonary arterial hypertension
     Dosage: 3 MG, UNKNOWN
     Route: 065
     Dates: start: 20170321, end: 20180913
  14. OPSUMIT [Concomitant]
     Active Substance: MACITENTAN
     Dosage: UNK, UNKNOWN
     Route: 065
     Dates: start: 20180914
  15. ENALAPRIL MALEATE [Concomitant]
     Active Substance: ENALAPRIL MALEATE
     Indication: Product used for unknown indication
     Dosage: 3 MG, UNKNOWN
     Route: 065
     Dates: start: 20170124, end: 20180913
  16. ENALAPRIL MALEATE [Concomitant]
     Active Substance: ENALAPRIL MALEATE
     Dosage: UNK, UNKNOWN
     Route: 065
     Dates: start: 20180914, end: 20191209
  17. ENALAPRIL MALEATE [Concomitant]
     Active Substance: ENALAPRIL MALEATE
     Dosage: 3.4 MG, UNKNOWN
     Route: 065
     Dates: start: 20191213
  18. FUROSEMIDE [Concomitant]
     Active Substance: FUROSEMIDE
     Indication: Product used for unknown indication
     Dosage: 23 MG, UNKNOWN
     Route: 065
     Dates: start: 20160922, end: 20180913
  19. FUROSEMIDE [Concomitant]
     Active Substance: FUROSEMIDE
     Dosage: UNK, UNKNOWN
     Route: 065
     Dates: start: 20180914, end: 20191209
  20. FUROSEMIDE [Concomitant]
     Active Substance: FUROSEMIDE
     Dosage: 25 MG, DAILY
     Dates: start: 20191213
  21. SPIRONOLACTONE [Concomitant]
     Active Substance: SPIRONOLACTONE
     Indication: Product used for unknown indication
     Dosage: 23 MG, UNKNOWN
     Route: 065
     Dates: start: 20161222, end: 20180913
  22. SPIRONOLACTONE [Concomitant]
     Active Substance: SPIRONOLACTONE
     Dosage: UNK, UNKNOWN
     Route: 065
     Dates: start: 20180914, end: 20191209
  23. SPIRONOLACTONE [Concomitant]
     Active Substance: SPIRONOLACTONE
     Dosage: 25 MG
     Dates: start: 20191213
  24. WARFARIN POTASSIUM [Concomitant]
     Active Substance: WARFARIN POTASSIUM
     Indication: Product used for unknown indication
     Dosage: 1.4 MG, UNKNOWN
     Route: 065
     Dates: start: 20161122, end: 20180913
  25. WARFARIN POTASSIUM [Concomitant]
     Active Substance: WARFARIN POTASSIUM
     Dosage: UNK, UNKNOWN
     Route: 065
     Dates: start: 20180914, end: 20190723
  26. WARFARIN POTASSIUM [Concomitant]
     Active Substance: WARFARIN POTASSIUM
     Dosage: 1.7 MG
     Dates: start: 20190724
  27. DIGOXIN [Concomitant]
     Active Substance: DIGOXIN
     Indication: Product used for unknown indication
     Dosage: 0.1 MG, UNKNOWN
     Route: 065
     Dates: start: 20160303, end: 20180913
  28. DIGOXIN [Concomitant]
     Active Substance: DIGOXIN
     Dosage: UNK, UNKNOWN
     Route: 065
     Dates: start: 20180914, end: 20191209
  29. DIGOXIN [Concomitant]
     Active Substance: DIGOXIN
     Dosage: 0.119 UNK
     Dates: start: 20191213
  30. CARVEDILOL [Concomitant]
     Active Substance: CARVEDILOL
     Indication: Product used for unknown indication
     Dosage: 4.5 MG, UNKNOWN
     Route: 065
     Dates: start: 20161222, end: 20180913
  31. CARVEDILOL [Concomitant]
     Active Substance: CARVEDILOL
     Dosage: UNK, UNKNOWN
     Route: 065
     Dates: start: 20180914, end: 20190131
  32. CARVEDILOL [Concomitant]
     Active Substance: CARVEDILOL
     Dosage: 6.8 UNK
     Dates: start: 20190201
  33. MIDAZOLAM HYDROCHLORIDE [Concomitant]
     Active Substance: MIDAZOLAM HYDROCHLORIDE
     Indication: Catheterisation cardiac
     Dosage: 6 MG, UNKNOWN
     Dates: start: 20190104, end: 20190104
  34. FENTANYL CITRATE [Concomitant]
     Active Substance: FENTANYL CITRATE
     Indication: Catheterisation cardiac
     Dosage: 100 UG, UNKNOWN
     Dates: start: 20190104, end: 20190104
  35. ULTIVA [Concomitant]
     Active Substance: REMIFENTANIL HYDROCHLORIDE
     Indication: Catheterisation cardiac
     Dosage: UNK, UNKNOWN
     Dates: start: 20190104, end: 20190104
  36. ROCURONIUM BROMIDE [Concomitant]
     Active Substance: ROCURONIUM BROMIDE
     Indication: Catheterisation cardiac
     Dosage: 45 MG, UNKNOWN
     Dates: start: 20190104, end: 20190104
  37. HEPARIN [Concomitant]
     Active Substance: HEPARIN SODIUM
     Indication: Product used for unknown indication
     Dosage: UNK
     Dates: start: 20191210, end: 20191218

REACTIONS (19)
  - Diarrhoea [Recovering/Resolving]
  - Pyrexia [Recovered/Resolved]
  - Pyrexia [Recovered/Resolved]
  - Cough [Recovering/Resolving]
  - Vomiting [Recovering/Resolving]
  - Vomiting [Recovered/Resolved]
  - Upper respiratory tract inflammation [Recovering/Resolving]
  - Pyrexia [Recovering/Resolving]
  - Upper respiratory tract inflammation [Recovering/Resolving]
  - Pyrexia [Recovering/Resolving]
  - Pyrexia [Recovering/Resolving]
  - Cough [Recovering/Resolving]
  - Rhinorrhoea [Recovering/Resolving]
  - Hypotension [Recovering/Resolving]
  - Hypotension [Recovered/Resolved]
  - Abdominal pain [Recovered/Resolved]
  - Hypotension [Not Recovered/Not Resolved]
  - Hypotension [Recovered/Resolved]
  - Off label use [Unknown]

NARRATIVE: CASE EVENT DATE: 20181210
